FAERS Safety Report 7382297-1 (Version None)
Quarter: 2011Q1

REPORT INFORMATION
  Report Type: 
  Country: None (occurrence: None)
  Receive Date: 20110329
  Receipt Date: 20110329
  Transmission Date: 20110831
  Serious: Yes (Life-Threatening, Hospitalization)
  Sender: FDA-Public Use
  Company Number: US-AMGEN-USACT2011008218

PATIENT
  Age: 65 Year
  Sex: Male
  Weight: 64.853 kg

DRUGS (3)
  1. PANITUMUMAB [Suspect]
     Indication: OESOPHAGEAL CARCINOMA
     Dosage: 1.5 MG/KG, QWK
     Dates: start: 20101206, end: 20110103
  2. CISPLATIN [Concomitant]
     Indication: OESOPHAGEAL ADENOCARCINOMA
     Dosage: 80 MG/M2, QMO
     Route: 042
     Dates: start: 20101206, end: 20110103
  3. FLUOROURACIL [Concomitant]
     Indication: OESOPHAGEAL ADENOCARCINOMA
     Dosage: 100 MG/M2, QMO
     Route: 042
     Dates: start: 20101206, end: 20110107

REACTIONS (7)
  - SMALL INTESTINAL HAEMORRHAGE [None]
  - HYPERBILIRUBINAEMIA [None]
  - PLATELET COUNT DECREASED [None]
  - HEPATIC ENZYME ABNORMAL [None]
  - CARDIAC ARREST [None]
  - RENAL INJURY [None]
  - LYMPHOPENIA [None]
